FAERS Safety Report 5824333-7 (Version None)
Quarter: 2008Q3

REPORT INFORMATION
  Report Type: 
  Country: None (occurrence: None)
  Receive Date: 20080728
  Receipt Date: 20080717
  Transmission Date: 20090109
  Serious: Yes (Hospitalization)
  Sender: FDA-Public Use
  Company Number: US-JNJFOC-20080705034

PATIENT
  Sex: Male

DRUGS (6)
  1. DURAGESIC-100 [Suspect]
     Route: 062
  2. DURAGESIC-100 [Suspect]
     Route: 062
  3. DURAGESIC-100 [Suspect]
     Indication: PAIN
     Route: 062
  4. NORVASC [Concomitant]
     Indication: HYPERTENSION
     Route: 048
  5. GABITRIL [Concomitant]
     Indication: DEPRESSION
     Route: 048
  6. ALLEGRA [Concomitant]
     Indication: SEASONAL ALLERGY
     Route: 048

REACTIONS (4)
  - BACK PAIN [None]
  - DRUG INEFFECTIVE [None]
  - DYSURIA [None]
  - SUICIDE ATTEMPT [None]
